FAERS Safety Report 21508624 (Version 1)
Quarter: 2022Q4

REPORT INFORMATION
  Report Type: Spontaneous
  Country: FR (occurrence: FR)
  Receive Date: 20221026
  Receipt Date: 20221026
  Transmission Date: 20230113
  Serious: Yes (Other)
  Sender: FDA-Public Use
  Company Number: None

PATIENT
  Age: 56 Year
  Sex: Male

DRUGS (7)
  1. GABAPENTIN [Suspect]
     Active Substance: GABAPENTIN
     Indication: Postoperative analgesia
     Dosage: 400 MILLIGRAM DAILY; 400MG PER DAY , DURATION : 4MONTH
     Dates: start: 202201, end: 202205
  2. GABAPENTIN [Suspect]
     Active Substance: GABAPENTIN
     Indication: Arthralgia
     Dosage: 600 MILLIGRAM DAILY;  600MG PER DAY, DURATION : 2 MONTH
     Dates: start: 202205, end: 202207
  3. GABAPENTIN [Suspect]
     Active Substance: GABAPENTIN
     Dosage: 400 MILLIGRAM DAILY; 400MG PER DAY , THERAPY END DATE : NASK
     Dates: start: 202207
  4. OXYCODONE HYDROCHLORIDE [Suspect]
     Active Substance: OXYCODONE HYDROCHLORIDE
     Indication: Postoperative analgesia
     Dosage: 5MG IF NEEDED  ,UNIT DOSE : 5 MG ,  THERAPY END DATE : NASK
     Dates: start: 202109
  5. OXYCODONE HYDROCHLORIDE [Suspect]
     Active Substance: OXYCODONE HYDROCHLORIDE
     Indication: Arthralgia
  6. OXYCONTIN [Suspect]
     Active Substance: OXYCODONE HYDROCHLORIDE
     Indication: Arthralgia
     Dosage: 20 MILLIGRAM DAILY; 10MG-0-10MG , DURATION : 11 MONTH
     Dates: start: 202109, end: 202208
  7. OXYCONTIN [Suspect]
     Active Substance: OXYCODONE HYDROCHLORIDE
     Indication: Postoperative analgesia
     Dosage: 30 MILLIGRAM DAILY; 20MG-0-10MG , UNIT DOSE : 30 MG , FREQUENCY TIME : 1 DAY , THERAPY END DATE : NA
     Dates: start: 202208

REACTIONS (1)
  - Hallucination, auditory [Not Recovered/Not Resolved]

NARRATIVE: CASE EVENT DATE: 20220604
